FAERS Safety Report 20021204 (Version 3)
Quarter: 2021Q4

REPORT INFORMATION
  Report Type: Spontaneous
  Country: JP (occurrence: JP)
  Receive Date: 20211101
  Receipt Date: 20211129
  Transmission Date: 20220303
  Serious: Yes (Life-Threatening, Hospitalization)
  Sender: FDA-Public Use
  Company Number: US-CELGENE-JPN-20211008340

PATIENT
  Age: 74 Year
  Sex: Male

DRUGS (28)
  1. AZACITIDINE [Suspect]
     Active Substance: AZACITIDINE
     Indication: Myelodysplastic syndrome
     Dosage: 75 MILLIGRAM/SQ. METER ?7 DAYS WITH IN THE FIRST 9DAYS OFF EACH 28 DAY CYCLE
     Route: 058
     Dates: start: 20210608, end: 20211004
  2. VENETOCLAX [Suspect]
     Active Substance: VENETOCLAX
     Indication: Myelodysplastic syndrome
     Route: 065
  3. PITAVASTATIN CALCIUM [Concomitant]
     Active Substance: PITAVASTATIN CALCIUM
     Indication: Hyperlipidaemia
     Dosage: 4 MILLIGRAM
     Route: 048
     Dates: start: 2017
  4. SILODOSIN [Concomitant]
     Active Substance: SILODOSIN
     Indication: Prostate infection
     Dosage: 16 MILLIGRAM
     Route: 048
     Dates: start: 2020
  5. CHONDROITIN SULFATE (BOVINE) [Concomitant]
     Active Substance: CHONDROITIN SULFATE (BOVINE)
     Indication: Psoriasis
     Route: 061
     Dates: start: 2017
  6. CLOBETASOL [Concomitant]
     Active Substance: CLOBETASOL
     Indication: Psoriasis
     Route: 061
     Dates: start: 2021, end: 20211023
  7. BETAMETHASONE\CALCIPOTRIENE [Concomitant]
     Active Substance: BETAMETHASONE\CALCIPOTRIENE
     Indication: Psoriasis
     Route: 061
     Dates: start: 2014, end: 20211023
  8. DIFLUCAN [Concomitant]
     Active Substance: FLUCONAZOLE
     Indication: Infection prophylaxis
     Route: 048
     Dates: start: 20210607, end: 20211023
  9. LANSOPRAZOLE [Concomitant]
     Active Substance: LANSOPRAZOLE
     Indication: Gastritis prophylaxis
     Route: 048
     Dates: start: 20210608, end: 20211023
  10. AMITIZA [Concomitant]
     Active Substance: LUBIPROSTONE
     Indication: Constipation
     Route: 048
     Dates: start: 20210610, end: 20210623
  11. AMITIZA [Concomitant]
     Active Substance: LUBIPROSTONE
     Route: 048
     Dates: start: 20210816, end: 20211023
  12. CALONAL [Concomitant]
     Active Substance: ACETAMINOPHEN
     Indication: Pyrexia
     Route: 048
     Dates: start: 20210610
  13. LEVOFLOXACIN [Concomitant]
     Active Substance: LEVOFLOXACIN
     Indication: Infection prophylaxis
     Route: 048
     Dates: start: 20210611, end: 20210616
  14. LEVOFLOXACIN [Concomitant]
     Active Substance: LEVOFLOXACIN
     Route: 048
     Dates: start: 20210816, end: 20211015
  15. MAGNESIUM OXIDE [Concomitant]
     Active Substance: MAGNESIUM OXIDE
     Indication: Constipation
     Route: 048
     Dates: start: 20210616, end: 20211023
  16. SILODOSIN [Concomitant]
     Active Substance: SILODOSIN
     Indication: Prostate infection
     Dosage: 8 MG ( 4 MG, 2 IN 1 D)
     Route: 048
     Dates: start: 20210619, end: 20211014
  17. ZOLPIDEM TARTRATE [Concomitant]
     Active Substance: ZOLPIDEM TARTRATE
     Indication: Insomnia
     Route: 048
     Dates: start: 20210612, end: 20211023
  18. LIDOCAINE\TRIBENOSIDE [Concomitant]
     Active Substance: LIDOCAINE\TRIBENOSIDE
     Indication: Anal fissure
     Route: 061
     Dates: start: 20210816, end: 20211023
  19. GLYCOSAMINOGLYCANS [Concomitant]
     Active Substance: GLYCOSAMINOGLYCANS
     Indication: Psoriasis
     Route: 061
     Dates: start: 20210807, end: 20211023
  20. RINDERON VG [Concomitant]
     Active Substance: BETAMETHASONE VALERATE\GENTAMICIN SULFATE
     Indication: Psoriasis
     Route: 061
     Dates: start: 20210615, end: 20211023
  21. DIFLUCORTOLONE VALERATE\LIDOCAINE [Concomitant]
     Active Substance: DIFLUCORTOLONE VALERATE\LIDOCAINE
     Indication: Anal fissure
     Route: 061
     Dates: start: 20210820
  22. VITAMIN B [Concomitant]
     Active Substance: VITAMIN B
     Indication: Aphthous ulcer
     Route: 048
     Dates: start: 20210820
  23. PRIMPERAN [Concomitant]
     Active Substance: METOCLOPRAMIDE HYDROCHLORIDE
     Indication: Nausea
     Route: 048
     Dates: start: 20210902
  24. PRIMPERAN [Concomitant]
     Active Substance: METOCLOPRAMIDE HYDROCHLORIDE
     Route: 041
     Dates: start: 20210929
  25. DEXAMETHASONE [Concomitant]
     Active Substance: DEXAMETHASONE
     Indication: Aphthous ulcer
     Route: 061
     Dates: start: 20210830, end: 20211023
  26. METGLUCO [Concomitant]
     Active Substance: METFORMIN HYDROCHLORIDE
     Indication: Diabetes mellitus
     Dosage: (250 MG, 2 IN 1 D)
     Route: 048
     Dates: start: 20210903, end: 20211021
  27. PETROLATUM [Concomitant]
     Active Substance: PETROLATUM
     Indication: Dry skin
     Route: 061
     Dates: start: 20211002, end: 20211023
  28. ORTEXER [Concomitant]
     Indication: Aphthous ulcer
     Route: 061
     Dates: start: 20210724, end: 20211023

REACTIONS (1)
  - Hyperglycaemic hyperosmolar nonketotic syndrome [Recovered/Resolved]

NARRATIVE: CASE EVENT DATE: 20211024
